FAERS Safety Report 8123490-X (Version None)
Quarter: 2012Q1

REPORT INFORMATION
  Report Type: 
  Country: None (occurrence: None)
  Receive Date: 20120208
  Receipt Date: 20120131
  Transmission Date: 20120608
  Serious: Yes (Other)
  Sender: FDA-Public Use
  Company Number: PHHY2011IT109829

PATIENT
  Sex: Female

DRUGS (6)
  1. KEPPRA [Concomitant]
     Dosage: 1000 MG, UNK
     Route: 048
  2. OXCARBAZEPINE [Suspect]
     Indication: PARTIAL SEIZURES
     Dosage: 600 MG, DAILY
     Route: 048
     Dates: start: 20100928, end: 20110927
  3. VALSARTAN [Suspect]
     Dosage: 80 MG, DAILY
     Route: 048
     Dates: start: 20100928, end: 20110927
  4. FLUIMICIL [Concomitant]
     Dosage: 1 IU (POSOLOGIC UNIT), UNK
     Dates: start: 20100927, end: 20110927
  5. LESCOL [Concomitant]
     Dosage: 40 MG, UNK
     Route: 048
  6. ACETYLSALICYLIC ACID SRT [Concomitant]

REACTIONS (2)
  - BLOOD SODIUM DECREASED [None]
  - SYNCOPE [None]
